FAERS Safety Report 14159917 (Version 1)
Quarter: 2017Q4

REPORT INFORMATION
  Report Type: Spontaneous
  Country: US (occurrence: US)
  Receive Date: 20171103
  Receipt Date: 20171103
  Transmission Date: 20180321
  Serious: No
  Sender: FDA-Public Use
  Company Number: US-AMGEN-USASP2017127738

PATIENT
  Sex: Female

DRUGS (4)
  1. PROCRIT [Suspect]
     Active Substance: ERYTHROPOIETIN
     Indication: WHITE BLOOD CELL COUNT DECREASED
  2. IBRANCE [Suspect]
     Active Substance: PALBOCICLIB
     Indication: BREAST CANCER
     Dosage: 125 MG, QD (THREE WEEKS ON, 1 WEEK OFF)
     Route: 048
     Dates: start: 20170210, end: 201706
  3. IBRANCE [Suspect]
     Active Substance: PALBOCICLIB
     Dosage: 100 MG, QD (THREE WEEKS ON, 1 WEEK OFF)
     Route: 048
     Dates: start: 20170718
  4. PROCRIT [Suspect]
     Active Substance: ERYTHROPOIETIN
     Indication: RED BLOOD CELL COUNT DECREASED
     Dosage: UNK
     Route: 065
     Dates: start: 2017

REACTIONS (4)
  - Fatigue [Not Recovered/Not Resolved]
  - Blood count abnormal [Unknown]
  - Muscle spasms [Not Recovered/Not Resolved]
  - Off label use [Unknown]

NARRATIVE: CASE EVENT DATE: 2017
